FAERS Safety Report 16586366 (Version 2)
Quarter: 2019Q3

REPORT INFORMATION
  Report Type: Spontaneous
  Country: FR (occurrence: FR)
  Receive Date: 20190717
  Receipt Date: 20190824
  Transmission Date: 20191004
  Serious: Yes (Hospitalization)
  Sender: FDA-Public Use
  Company Number: FR-TEVA-2019-FR-1078167

PATIENT
  Age: 19 Year
  Sex: Female

DRUGS (2)
  1. AUGMENTIN [Concomitant]
     Active Substance: AMOXICILLIN\CLAVULANATE POTASSIUM
     Indication: INFECTION
     Route: 048
     Dates: start: 20190608
  2. IBUPROFENE [Suspect]
     Active Substance: IBUPROFEN
     Indication: PAROTITIS
     Dosage: UNKNOWN
     Route: 048
     Dates: start: 201906, end: 20190610

REACTIONS (2)
  - Cellulitis [Recovered/Resolved]
  - Viral parotitis [Recovered/Resolved]

NARRATIVE: CASE EVENT DATE: 20190610
